FAERS Safety Report 10741471 (Version 2)
Quarter: 2015Q2

REPORT INFORMATION
  Report Type: Spontaneous
  Country: US (occurrence: US)
  Receive Date: 20150127
  Receipt Date: 20150421
  Transmission Date: 20150821
  Serious: Yes (Other)
  Sender: FDA-Public Use
  Company Number: US-BEH-2015048084

PATIENT
  Age: 52 Year
  Sex: Female
  Weight: 114 kg

DRUGS (46)
  1. ACETAMINOPHEN. [Concomitant]
     Active Substance: ACETAMINOPHEN
  2. PRAVACHOL [Concomitant]
     Active Substance: PRAVASTATIN SODIUM
  3. EFFEXOR [Concomitant]
     Active Substance: VENLAFAXINE HYDROCHLORIDE
  4. FLOMAX [Concomitant]
     Active Substance: TAMSULOSIN HYDROCHLORIDE
  5. ALBUTEROL. [Concomitant]
     Active Substance: ALBUTEROL
  6. PRIVIGEN [Suspect]
     Active Substance: HUMAN IMMUNOGLOBULIN G
     Route: 042
  7. DIPHENHYDRAMINE [Concomitant]
     Active Substance: DIPHENHYDRAMINE
  8. PRILOSEC [Concomitant]
     Active Substance: OMEPRAZOLE MAGNESIUM
  9. CALCIUM+D [Concomitant]
  10. ASPIRIN. [Concomitant]
     Active Substance: ASPIRIN
  11. PRIVIGEN [Suspect]
     Active Substance: HUMAN IMMUNOGLOBULIN G
     Route: 042
  12. PRIVIGEN [Suspect]
     Active Substance: HUMAN IMMUNOGLOBULIN G
     Route: 042
  13. CIPRO [Concomitant]
     Active Substance: CIPROFLOXACIN HYDROCHLORIDE
  14. ZOFRAN [Concomitant]
     Active Substance: ONDANSETRON HYDROCHLORIDE
  15. SAVELLA [Concomitant]
     Active Substance: MILNACIPRAN HYDROCHLORIDE
  16. TEMOVATE [Concomitant]
     Active Substance: CLOBETASOL PROPIONATE
  17. MIRALAX [Concomitant]
     Active Substance: POLYETHYLENE GLYCOL 3350
  18. XYLOCAINE [Concomitant]
     Active Substance: LIDOCAINE HYDROCHLORIDE
  19. LIDOCAINE. [Concomitant]
     Active Substance: LIDOCAINE
  20. FOLIC ACID. [Concomitant]
     Active Substance: FOLIC ACID
  21. EPIPEN [Concomitant]
     Active Substance: EPINEPHRINE
  22. CENTRUM MULTIVITAMIN [Concomitant]
  23. SINGULAIR [Concomitant]
     Active Substance: MONTELUKAST SODIUM
  24. AMBIEN [Concomitant]
     Active Substance: ZOLPIDEM TARTRATE
  25. SENNA [Concomitant]
     Active Substance: SENNA LEAF\SENNOSIDES\SENNOSIDES A AND B
  26. FISH OIL [Concomitant]
     Active Substance: FISH OIL
  27. NORTRIPTYLIN [Concomitant]
     Active Substance: NORTRIPTYLINE
  28. CYMBALTA [Concomitant]
     Active Substance: DULOXETINE HYDROCHLORIDE
  29. KEPPRA [Concomitant]
     Active Substance: LEVETIRACETAM
  30. DANTRIUM [Concomitant]
     Active Substance: DANTROLENE SODIUM
  31. ENBREL [Concomitant]
     Active Substance: ETANERCEPT
  32. BACLOFEN. [Concomitant]
     Active Substance: BACLOFEN
  33. BECLOMETHASONE [Concomitant]
     Active Substance: BECLOMETHASONE
  34. THALOMID [Concomitant]
     Active Substance: THALIDOMIDE
  35. PRIVIGEN [Suspect]
     Active Substance: HUMAN IMMUNOGLOBULIN G
     Indication: HYPOGAMMAGLOBULINAEMIA
     Route: 042
  36. PREDNISONE. [Concomitant]
     Active Substance: PREDNISONE
  37. NORMAL SALINE [Concomitant]
     Active Substance: SODIUM CHLORIDE
  38. ZITHROMAX [Concomitant]
     Active Substance: AZITHROMYCIN DIHYDRATE
  39. LMX [Concomitant]
     Active Substance: LIDOCAINE
  40. FLONASE [Concomitant]
     Active Substance: FLUTICASONE PROPIONATE
  41. HYDROCODONE-APAP [Concomitant]
     Active Substance: ACETAMINOPHEN\HYDROCODONE
  42. QVAR [Concomitant]
     Active Substance: BECLOMETHASONE DIPROPIONATE
  43. ERYTHROMYCIN. [Concomitant]
     Active Substance: ERYTHROMYCIN
  44. SODIUM CHLORIDE. [Concomitant]
     Active Substance: SODIUM CHLORIDE
  45. VALIUM [Concomitant]
     Active Substance: DIAZEPAM
  46. KLONOPIN [Concomitant]
     Active Substance: CLONAZEPAM

REACTIONS (2)
  - Urinary tract infection [Not Recovered/Not Resolved]
  - Kidney infection [Not Recovered/Not Resolved]

NARRATIVE: CASE EVENT DATE: 20150112
